FAERS Safety Report 8481184-5 (Version None)
Quarter: 2012Q3

REPORT INFORMATION
  Report Type: 
  Country: None (occurrence: None)
  Receive Date: 20120702
  Receipt Date: 20120626
  Transmission Date: 20120928
  Serious: No
  Sender: FDA-Public Use
  Company Number: PHHY2012JP053857

PATIENT
  Age: 90 Year
  Sex: Female

DRUGS (9)
  1. ZYLORIC ^FRESENIUS^ [Concomitant]
     Dosage: 100 MG, UNK
     Route: 048
  2. LASIX [Concomitant]
     Dosage: 20 MG, UNK
  3. OPALMON [Concomitant]
     Dosage: 5 UG, UNK
     Route: 048
  4. ASPIRIN [Concomitant]
     Dosage: 100 MG, UNK
     Route: 048
  5. EXELON [Suspect]
     Indication: DEMENTIA ALZHEIMER'S TYPE
     Dosage: 4.5 MG, DAILY
     Route: 062
     Dates: start: 20120603, end: 20120616
  6. LANSOPRAZOLE [Concomitant]
     Dosage: 15 MG, UNK
     Route: 048
  7. FERROUS CITRATE [Concomitant]
     Dosage: 50 MG, UNK
     Route: 048
  8. LOSARTAN POTASSIUM [Concomitant]
     Dosage: 50 MG, UNK
     Route: 048
  9. LEVOTHYROXINE SODIUM [Concomitant]
     Dosage: 50 UG, UNK
     Route: 048

REACTIONS (1)
  - LIVER DISORDER [None]
